FAERS Safety Report 19867029 (Version 2)
Quarter: 2021Q4

REPORT INFORMATION
  Report Type: Spontaneous
  Country: US (occurrence: US)
  Receive Date: 20210922
  Receipt Date: 20211012
  Transmission Date: 20220303
  Serious: Yes (Life-Threatening, Hospitalization, Other)
  Sender: FDA-Public Use
  Company Number: US-MACLEODS PHARMACEUTICALS US LTD-MAC2021032726

PATIENT

DRUGS (3)
  1. OLANZAPINE [Suspect]
     Active Substance: OLANZAPINE
     Indication: Schizophrenia
     Dosage: 20 MILLIGRAM, QD
     Route: 065
  2. HALOPERIDOL [Suspect]
     Active Substance: HALOPERIDOL
     Indication: Schizophrenia
     Dosage: 10 MILLIGRAM, QD
     Route: 065
  3. HALOPERIDOL DECANOATE [Suspect]
     Active Substance: HALOPERIDOL DECANOATE
     Indication: Schizophrenia
     Dosage: 100 MILLIGRAM (EVERY FOUR WEEKS)
     Route: 065

REACTIONS (9)
  - Pancreatitis necrotising [Not Recovered/Not Resolved]
  - Lactic acidosis [Unknown]
  - Peptostreptococcus infection [Unknown]
  - Bacteraemia [Unknown]
  - Acute respiratory failure [Unknown]
  - Hypertriglyceridaemia [Recovered/Resolved]
  - Type 1 diabetes mellitus [Unknown]
  - Blood triglycerides increased [Unknown]
  - Hyperglycaemia [Unknown]
